FAERS Safety Report 25711552 (Version 2)
Quarter: 2025Q4

REPORT INFORMATION
  Report Type: Spontaneous
  Country: US (occurrence: US)
  Receive Date: 20250821
  Receipt Date: 20251013
  Transmission Date: 20260117
  Serious: Yes (Congenital Anomaly, Other)
  Sender: AMGEN
  Company Number: US-AMGEN-USASP2025162213

PATIENT

DRUGS (2)
  1. PREDNISONE [Suspect]
     Active Substance: PREDNISONE
     Indication: Exposure during pregnancy
     Dosage: UNK
     Route: 064
  2. PREDNISONE [Suspect]
     Active Substance: PREDNISONE
     Indication: Maternal exposure during breast feeding
     Dosage: UNK
     Route: 063

REACTIONS (7)
  - Congenital pulmonary hypertension [Unknown]
  - Congenital anomaly [Unknown]
  - Premature baby [Unknown]
  - Tethered oral tissue [Unknown]
  - Exposure via breast milk [Unknown]
  - Ill-defined disorder [Unknown]
  - Foetal exposure during pregnancy [Unknown]
